FAERS Safety Report 7417997-8 (Version None)
Quarter: 2011Q2

REPORT INFORMATION
  Report Type: 
  Country: None (occurrence: None)
  Receive Date: 20110412
  Receipt Date: 20110412
  Transmission Date: 20111010
  Serious: Yes (Disabling, Other)
  Sender: FDA-Public Use
  Company Number: None

PATIENT
  Sex: Female
  Weight: 125.1928 kg

DRUGS (2)
  1. CIPRO [Suspect]
     Indication: URINARY TRACT INFECTION
     Dosage: 1 TAB BID FOR 5 DAYS BID PO
     Route: 048
     Dates: start: 20100615, end: 20100620
  2. LEVAQUIN [Suspect]
     Indication: EAR INFECTION
     Dosage: 10 DAYS 1 QD PO
     Route: 048
     Dates: start: 20091229, end: 20100108

REACTIONS (9)
  - JOINT SWELLING [None]
  - URINARY TRACT INFECTION [None]
  - TENDON RUPTURE [None]
  - EAR INFECTION [None]
  - UPPER RESPIRATORY TRACT INFECTION [None]
  - PAIN IN EXTREMITY [None]
  - TENDON PAIN [None]
  - MYALGIA [None]
  - LIVER INJURY [None]
